FAERS Safety Report 9774540 (Version 1)
Quarter: 2013Q4

REPORT INFORMATION
  Report Type: Spontaneous
  Country: US (occurrence: US)
  Receive Date: 20131220
  Receipt Date: 20131220
  Transmission Date: 20140711
  Serious: No
  Sender: FDA-Public Use
  Company Number: US-BAYER-2013-146936

PATIENT
  Age: 21 Year
  Sex: Female

DRUGS (2)
  1. OCELLA [Suspect]
     Indication: CONTRACEPTION
     Dosage: 1 DF, QD
     Route: 048
     Dates: start: 2009
  2. OCELLA [Suspect]
     Indication: POLYCYSTIC OVARIES

REACTIONS (2)
  - Acne [Recovered/Resolved]
  - Menstruation irregular [Recovered/Resolved]
